FAERS Safety Report 5818202-6 (Version None)
Quarter: 2008Q3

REPORT INFORMATION
  Report Type: 
  Country: None (occurrence: None)
  Receive Date: 20080722
  Receipt Date: 20080715
  Transmission Date: 20090109
  Serious: Yes (Death, Congenital Anomaly)
  Sender: FDA-Public Use
  Company Number: GB-TYCO HEALTHCARE/MALLINCKRODT-T200801164

PATIENT

DRUGS (1)
  1. IMIPRAMINE PAMOATE [Suspect]
     Dosage: UNK, UNK
     Route: 064

REACTIONS (8)
  - CLEFT PALATE [None]
  - CONGENITAL ADRENAL GLAND HYPOPLASIA [None]
  - CONGENITAL CENTRAL NERVOUS SYSTEM ANOMALY [None]
  - CONGENITAL DIAPHRAGMATIC HERNIA [None]
  - CONGENITAL MUSCULOSKELETAL ANOMALY [None]
  - CONGENITAL NEUROLOGICAL DISORDER [None]
  - CONGENITAL SPINAL CORD ANOMALY [None]
  - INIENCEPHALY [None]
